FAERS Safety Report 8535800-X (Version None)
Quarter: 2012Q3

REPORT INFORMATION
  Report Type: 
  Country: None (occurrence: None)
  Receive Date: 20120725
  Receipt Date: 20120716
  Transmission Date: 20120928
  Serious: Yes (Hospitalization)
  Sender: FDA-Public Use
  Company Number: CA-JNJFOC-20120709089

PATIENT
  Sex: Male
  Weight: 118.6 kg

DRUGS (4)
  1. REMICADE [Suspect]
     Indication: CROHN'S DISEASE
     Route: 042
     Dates: start: 20100804
  2. PANTOPRAZOLE SODIUM [Concomitant]
     Dosage: AS NEEDED
     Route: 048
  3. MESALAMINE [Concomitant]
     Dosage: AS NEEDED
     Route: 065
  4. CELEBREX [Concomitant]
     Dosage: AS NEEDED
     Route: 065

REACTIONS (1)
  - ANAL CANCER [None]
